FAERS Safety Report 7200034-8 (Version None)
Quarter: 2010Q4

REPORT INFORMATION
  Report Type: 
  Country: None (occurrence: None)
  Receive Date: 20101228
  Receipt Date: 20101222
  Transmission Date: 20110411
  Serious: Yes (Hospitalization)
  Sender: FDA-Public Use
  Company Number: CA-SANOFI-AVENTIS-2010SA077546

PATIENT
  Age: 61 Year
  Sex: Male

DRUGS (4)
  1. SOLOSTAR [Suspect]
     Dates: start: 20100301
  2. LANTUS [Suspect]
     Route: 058
     Dates: start: 20100301
  3. SOLOSTAR [Suspect]
     Dates: start: 20100401
  4. APIDRA SOLOSTAR [Suspect]
     Route: 058
     Dates: start: 20100401

REACTIONS (3)
  - MALAISE [None]
  - VISION BLURRED [None]
  - WRONG DRUG ADMINISTERED [None]
